FAERS Safety Report 8044595-8 (Version None)
Quarter: 2012Q1

REPORT INFORMATION
  Report Type: 
  Country: None (occurrence: None)
  Receive Date: 20120113
  Receipt Date: 20120113
  Transmission Date: 20120608
  Serious: Yes (Life-Threatening, Hospitalization)
  Sender: FDA-Public Use
  Company Number: None

PATIENT
  Age: 55 Year
  Sex: Female
  Weight: 165.56 kg

DRUGS (2)
  1. VANDETANIB [Suspect]
     Indication: MALIGNANT PERITONEAL NEOPLASM
     Dosage: 100MG
     Route: 048
     Dates: start: 20110908, end: 20110918
  2. VANDETANIB [Suspect]
     Indication: OVARIAN CANCER
     Dosage: 100MG
     Route: 048
     Dates: start: 20110908, end: 20110918

REACTIONS (1)
  - PULMONARY EMBOLISM [None]
